FAERS Safety Report 5015209-6 (Version None)
Quarter: 2006Q2

REPORT INFORMATION
  Report Type: 
  Country: None (occurrence: None)
  Receive Date: 20060425
  Receipt Date: 20060317
  Transmission Date: 20061013
  Serious: Yes (Other)
  Sender: FDA-Public Use
  Company Number: 222925

PATIENT
  Age: 56 Year
  Sex: Male
  Weight: 77.1 kg

DRUGS (4)
  1. XOLAIR [Suspect]
     Indication: ASTHMA
     Dosage: 300 MG, Q2W, SUBCUTANEOUS
     Route: 058
     Dates: start: 20050415, end: 20060301
  2. XANAX [Concomitant]
  3. NEXIUM [Concomitant]
  4. ALLERGY IMMUNOTHERAPY (ALLERGENIC EXTRACTS) [Concomitant]

REACTIONS (1)
  - MALIGNANT MELANOMA [None]
